FAERS Safety Report 5041015-2 (Version None)
Quarter: 2006Q3

REPORT INFORMATION
  Report Type: 
  Country: None (occurrence: None)
  Receive Date: 20060703
  Receipt Date: 20060419
  Transmission Date: 20061208
  Serious: No
  Sender: FDA-Public Use
  Company Number: US-GLAXOSMITHKLINE-A0602498A

PATIENT
  Sex: Female

DRUGS (3)
  1. PARNATE [Suspect]
     Indication: MAJOR DEPRESSION
     Dosage: 30MG PER DAY
     Route: 048
     Dates: start: 20060101
  2. RISPERDAL [Concomitant]
  3. LITHIUM CARBONATE [Concomitant]

REACTIONS (3)
  - CHILLS [None]
  - OEDEMA PERIPHERAL [None]
  - PYREXIA [None]
